FAERS Safety Report 6774903-7 (Version None)
Quarter: 2010Q2

REPORT INFORMATION
  Report Type: 
  Country: None (occurrence: None)
  Receive Date: 20100616
  Receipt Date: 20100616
  Transmission Date: 20101027
  Serious: No
  Sender: FDA-Public Use
  Company Number: None

PATIENT
  Age: 68 Year
  Sex: Female

DRUGS (2)
  1. INSULIN LISPRO [Suspect]
     Indication: HYPERGLYCAEMIA
     Dosage: SQ
     Route: 058
     Dates: start: 20100422, end: 20100425
  2. TPN ELECTROLYTES IN PLASTIC CONTAINER [Suspect]

REACTIONS (2)
  - BLOOD GLUCOSE DECREASED [None]
  - HYPERHIDROSIS [None]
